FAERS Safety Report 11384589 (Version 1)
Quarter: 2015Q3

REPORT INFORMATION
  Report Type: Spontaneous
  Country: US (occurrence: US)
  Receive Date: 20150811
  Receipt Date: 20150811
  Transmission Date: 20151125
  Serious: No
  Sender: FDA-Public Use
  Company Number: US-ELI_LILLY_AND_COMPANY-US201105002450

PATIENT
  Age: 66 Year
  Sex: Female

DRUGS (6)
  1. SYNTHROID [Concomitant]
     Active Substance: LEVOTHYROXINE SODIUM
     Dosage: 100 UG, QD
  2. TESSALON [Concomitant]
     Active Substance: BENZONATATE
     Dosage: 200 MG, TID
  3. ADCIRCA [Suspect]
     Active Substance: TADALAFIL
     Dosage: 20 MG, QD
     Dates: start: 20110415, end: 20110504
  4. PREDNISONE. [Concomitant]
     Active Substance: PREDNISONE
     Dosage: 7 MG, UNK
  5. FOSAMAX [Concomitant]
     Active Substance: ALENDRONATE SODIUM
     Dosage: 10 MG, QD
  6. PANCREATIN [Concomitant]
     Active Substance: PANCRELIPASE
     Dosage: 352 MG, BID

REACTIONS (6)
  - Joint swelling [Unknown]
  - Swelling face [Unknown]
  - Rash [Unknown]
  - Epistaxis [Unknown]
  - Blister [Unknown]
  - Skin exfoliation [Unknown]
